FAERS Safety Report 7304641-3 (Version None)
Quarter: 2011Q1

REPORT INFORMATION
  Report Type: 
  Country: None (occurrence: None)
  Receive Date: 20110222
  Receipt Date: 20110208
  Transmission Date: 20110831
  Serious: Yes (Hospitalization)
  Sender: FDA-Public Use
  Company Number: FR-BAYER-2011-012248

PATIENT
  Sex: Male
  Weight: 53 kg

DRUGS (5)
  1. LANTUS [Concomitant]
     Dosage: 100 UI/ML
     Dates: start: 20080101
  2. LEXOMIL [Concomitant]
     Dosage: 6 MG, QD
  3. NEXAVAR [Suspect]
     Dosage: 400 MG, QD
     Dates: start: 20100902, end: 20110206
  4. NEXAVAR [Suspect]
     Indication: HEPATIC NEOPLASM MALIGNANT
     Dosage: 800 MG, QD
     Route: 048
     Dates: start: 20100122, end: 20100718
  5. APIDRA [Concomitant]
     Dosage: 100 U/ML
     Dates: start: 20080101

REACTIONS (1)
  - ASCITES [None]
